FAERS Safety Report 20217595 (Version 1)
Quarter: 2021Q4

REPORT INFORMATION
  Report Type: Spontaneous
  Country: US (occurrence: None)
  Receive Date: 20211222
  Receipt Date: 20211222
  Transmission Date: 20220303
  Serious: Yes (Other)
  Sender: FDA-Public Use
  Company Number: US-Fresenius Kabi-FK202114299

PATIENT
  Age: 33 Year
  Sex: Female

DRUGS (9)
  1. DEXAMETHASONE [Suspect]
     Active Substance: DEXAMETHASONE
     Indication: Disease recurrence
     Dosage: DAILY ON DAYS 2-4?SALVAGE CHEMOTHERAPY WITH SMILE PROTOCOL IN AUGUST 2019 AND SEPTEMBER 2019
     Route: 065
  2. IFOSFAMIDE [Suspect]
     Active Substance: IFOSFAMIDE
     Indication: Disease recurrence
     Dosage: ON DAYS 2-4?SALVAGE CHEMOTHERAPY WITH SMILE PROTOCOL IN AUGUST 2019 AND SEPTEMBER 2019
  3. MESNA [Suspect]
     Active Substance: MESNA
     Indication: Disease recurrence
     Dosage: ONCE DAILY ON DAYS 2-4?SALVAGE CHEMOTHERAPY WITH SMILE PROTOCOL IN AUGUST 2019 AND SEPTEMBER 2019
  4. ETOPOSIDE [Suspect]
     Active Substance: ETOPOSIDE
     Indication: Disease recurrence
     Dosage: ON DAYS 2-4 ?SALVAGE CHEMOTHERAPY WITH SMILE PROTOCOL IN AUGUST 2019 AND SEPTEMBER 2019
  5. ASPARAGINASE [Suspect]
     Active Substance: ASPARAGINASE
     Indication: Disease recurrence
     Dosage: L-ASPARAGINASE (6000 U/M2 ON DAYS 8, 10, 12, 14, 16, 18 AND 20)?SALVAGE CHEMOTHERAPY WITH SMILE PROT
     Route: 030
  6. METHOTREXATE [Suspect]
     Active Substance: METHOTREXATE
     Indication: Disease recurrence
     Dosage: ON DAY 1?SALVAGE CHEMOTHERAPY WITH SMILE PROTOCOL IN AUGUST 2019 AND SEPTEMBER 2019
     Route: 048
  7. LEUCOVORIN [Suspect]
     Active Substance: LEUCOVORIN
     Indication: Disease recurrence
     Dosage: LEUCOVORIN (FOUR TIMES A DAY ON DAYS 2?4)?SALVAGE CHEMOTHERAPY WITH SMILE PROTOCOL IN AUGUST 2019 AN
  8. GRANULOCYTE COLONY-STIMULATING FACTOR NOS [Concomitant]
     Active Substance: GRANULOCYTE COLONY-STIMULATING FACTOR NOS
     Indication: Disease recurrence
     Dosage: UNSPECIFIED GRANULOCYTE COLONY-STIMULATING FACTOR SUPPORT FROM DAY 6?SALVAGE CHEMOTHERAPY WITH SMILE
     Route: 065
  9. BRENTUXIMAB VEDOTIN [Concomitant]
     Active Substance: BRENTUXIMAB VEDOTIN
     Indication: CD30 expression
     Route: 065

REACTIONS (2)
  - Thrombocytopenia [Unknown]
  - Neutropenia [Unknown]
